FAERS Safety Report 24244470 (Version 2)
Quarter: 2024Q3

REPORT INFORMATION
  Report Type: Report from Study
  Country: NL (occurrence: NL)
  Receive Date: 20240823
  Receipt Date: 20240829
  Transmission Date: 20241017
  Serious: Yes (Hospitalization, Other)
  Sender: VERITY PHARMACEUTICALS
  Company Number: NL-VER-202400052

PATIENT
  Sex: Male

DRUGS (3)
  1. TRIPTORELIN PAMOATE [Suspect]
     Active Substance: TRIPTORELIN PAMOATE
     Indication: Prostate cancer
     Dosage: (STRENGTH 11.2.5 MILLIGRAM SOLV 2ML) SUSPENSION FOR INJECTION AT A DOSE OF 11.25 MILLIGRAM VIA INTR
     Route: 030
     Dates: start: 20231113
  2. TRIPTORELIN PAMOATE [Suspect]
     Active Substance: TRIPTORELIN PAMOATE
     Indication: Prostate cancer
     Dosage: (STRENGTH 11.2.5 MILLIGRAM SOLV 2ML) SUSPENSION FOR INJECTION AT A DOSE OF 11.25 MILLIGRAM VIA INTR
     Route: 030
     Dates: start: 20240507
  3. TRIPTORELIN PAMOATE [Suspect]
     Active Substance: TRIPTORELIN PAMOATE
     Indication: Prostate cancer
     Dosage: (STRENGTH 11.2.5 MILLIGRAM SOLV 2ML) SUSPENSION FOR INJECTION AT A DOSE OF 11.25 MILLIGRAM VIA INTR
     Route: 030
     Dates: start: 20240806

REACTIONS (5)
  - Visual impairment [Unknown]
  - Cerebral infarction [Recovering/Resolving]
  - Myocardial infarction [Unknown]
  - Intestinal haemorrhage [Unknown]
  - Deafness unilateral [Unknown]
